FAERS Safety Report 8257917-X (Version None)
Quarter: 2012Q2

REPORT INFORMATION
  Report Type: 
  Country: None (occurrence: None)
  Receive Date: 20120404
  Receipt Date: 20120401
  Transmission Date: 20120825
  Serious: No
  Sender: FDA-Public Use
  Company Number: US-PFIZER INC-2012082208

PATIENT
  Sex: Female
  Weight: 67 kg

DRUGS (3)
  1. LAMOTRIGINE [Concomitant]
     Dosage: 100 MG, UNK
  2. CHANTIX [Suspect]
     Indication: SMOKING CESSATION THERAPY
     Dosage: 0.5 MG, 1X/DAY
     Route: 048
     Dates: start: 20120323
  3. LORAZEPAM [Concomitant]
     Dosage: 1 MG, UNK

REACTIONS (3)
  - CARDIOVASCULAR DISORDER [None]
  - PARAESTHESIA [None]
  - NAUSEA [None]
